FAERS Safety Report 12257621 (Version 1)
Quarter: 2016Q2

REPORT INFORMATION
  Report Type: Spontaneous
  Country: US (occurrence: US)
  Receive Date: 20160412
  Receipt Date: 20160412
  Transmission Date: 20160815
  Serious: Yes (Other)
  Sender: FDA-Public Use
  Company Number: US-TEVA-649285USA

PATIENT
  Age: 55 Year
  Sex: Female
  Weight: 72.64 kg

DRUGS (1)
  1. COPAXONE [Suspect]
     Active Substance: GLATIRAMER ACETATE
     Indication: RELAPSING-REMITTING MULTIPLE SCLEROSIS
     Route: 058
     Dates: start: 20140415, end: 20160318

REACTIONS (1)
  - Lymphocytic leukaemia [Unknown]

NARRATIVE: CASE EVENT DATE: 20160401
